FAERS Safety Report 19221363 (Version 7)
Quarter: 2025Q3

REPORT INFORMATION
  Report Type: Report from Study
  Country: GB (occurrence: GB)
  Receive Date: 20210505
  Receipt Date: 20250925
  Transmission Date: 20251021
  Serious: Yes (Disabling, Other)
  Sender: ROCHE
  Company Number: GB-ROCHE-2819840

PATIENT
  Age: 22 Year
  Sex: Female
  Weight: 49.0 kg

DRUGS (6)
  1. RISDIPLAM [Suspect]
     Active Substance: RISDIPLAM
     Indication: Spinal muscular atrophy
     Route: 048
     Dates: start: 20210326, end: 20211228
  2. ALBUTEROL [Suspect]
     Active Substance: ALBUTEROL
     Indication: Spinal muscular atrophy
     Route: 048
  3. DOMPERIDONE [Suspect]
     Active Substance: DOMPERIDONE
     Indication: Gastrointestinal motility disorder
     Route: 048
  4. CITALOPRAM [Suspect]
     Active Substance: CITALOPRAM
     Indication: Depression
     Route: 048
  5. CITALOPRAM [Suspect]
     Active Substance: CITALOPRAM
     Indication: Anxiety
  6. ERYTHROMYCIN [Concomitant]
     Active Substance: ERYTHROMYCIN
     Indication: Prophylaxis
     Route: 048

REACTIONS (9)
  - Chest discomfort [Recovered/Resolved]
  - Tachycardia [Not Recovered/Not Resolved]
  - Diarrhoea [Not Recovered/Not Resolved]
  - Diarrhoea [Unknown]
  - Vertigo positional [Recovered/Resolved]
  - Rash [Recovered/Resolved]
  - Cough [Recovered/Resolved]
  - Disease progression [Not Recovered/Not Resolved]
  - Drug ineffective [Unknown]

NARRATIVE: CASE EVENT DATE: 20210326
